FAERS Safety Report 8779032 (Version 1)
Quarter: 2012Q4

REPORT INFORMATION
  Report Type: 
  Country: GT (occurrence: GT)
  Receive Date: 20120912
  Receipt Date: 20120912
  Transmission Date: 20130627
  Serious: Yes (Other)
  Sender: FDA-Public Use
  Company Number: GT-PFIZER INC-2012221309

PATIENT
  Age: 90 Year
  Sex: Female

DRUGS (3)
  1. LYRICA [Suspect]
     Dosage: 75 mg, UNK
  2. MOBICOX [Concomitant]
  3. ZOPICLONE [Concomitant]
     Dosage: 3 mg, UNK

REACTIONS (4)
  - Aggression [Not Recovered/Not Resolved]
  - Hallucination [Not Recovered/Not Resolved]
  - Incoherent [Not Recovered/Not Resolved]
  - Insomnia [Not Recovered/Not Resolved]
